FAERS Safety Report 9905437 (Version 1)
Quarter: 2014Q1

REPORT INFORMATION
  Report Type: Spontaneous
  Country: GR (occurrence: GR)
  Receive Date: 20140218
  Receipt Date: 20140218
  Transmission Date: 20141002
  Serious: Yes (Hospitalization)
  Sender: FDA-Public Use
  Company Number: GR-B.I. PHARMACEUTICALS,INC./RIDGEFIELD-2014-BI-06464GB

PATIENT
  Age: 80 Year
  Sex: Male

DRUGS (4)
  1. PRADAXA [Suspect]
     Indication: ATRIAL FIBRILLATION
     Dosage: 220 MG
     Route: 048
     Dates: start: 201308, end: 20140116
  2. UNSPECIFIED DRUGS FOR HYPERTENSION [Concomitant]
     Indication: HYPERTENSION
  3. UNSPECIFIED DRUGS FOR DEPRESSION [Concomitant]
     Indication: DEPRESSION
  4. UNSPECIFIED DRUGS FOR GASTROPROPHYLAXIS [Concomitant]
     Indication: PROPHYLAXIS

REACTIONS (4)
  - Gastrointestinal haemorrhage [Recovered/Resolved]
  - Melaena [Recovered/Resolved]
  - Gastrointestinal angiodysplasia haemorrhagic [Recovered/Resolved]
  - Large intestine polyp [Recovered/Resolved]
